FAERS Safety Report 24280149 (Version 6)
Quarter: 2025Q1

REPORT INFORMATION
  Report Type: Report from Study
  Country: CA (occurrence: CA)
  Receive Date: 20240904
  Receipt Date: 20250310
  Transmission Date: 20250409
  Serious: Yes (Other)
  Sender: JOHNSON AND JOHNSON
  Company Number: CA-JNJFOC-20240900369

PATIENT
  Age: 38 Year
  Sex: Male
  Weight: 99 kg

DRUGS (7)
  1. REMICADE [Suspect]
     Active Substance: INFLIXIMAB
     Indication: Colitis ulcerative
     Dosage: EXPIRY DATE- 01-FEB-2027
     Route: 041
     Dates: start: 20131012, end: 20250208
  2. REMICADE [Suspect]
     Active Substance: INFLIXIMAB
     Route: 041
  3. REMICADE [Suspect]
     Active Substance: INFLIXIMAB
     Route: 041
  4. REMICADE [Suspect]
     Active Substance: INFLIXIMAB
     Route: 041
  5. REMICADE [Suspect]
     Active Substance: INFLIXIMAB
     Route: 041
     Dates: start: 20131012
  6. REMICADE [Suspect]
     Active Substance: INFLIXIMAB
     Dosage: 10 NUMBER OF UNITS INVOLVED IN THIS COMPLAINT
     Route: 041
     Dates: start: 20131012, end: 20250208
  7. CORTISONE [Concomitant]
     Active Substance: CORTISONE

REACTIONS (6)
  - Seizure [Unknown]
  - Colitis ulcerative [Recovered/Resolved]
  - Herpes zoster [Unknown]
  - Drug level increased [Recovered/Resolved]
  - Drug level decreased [Not Recovered/Not Resolved]
  - Stress [Unknown]

NARRATIVE: CASE EVENT DATE: 20240801
